FAERS Safety Report 4707574-1 (Version None)
Quarter: 2005Q3

REPORT INFORMATION
  Report Type: 
  Country: None (occurrence: None)
  Receive Date: 20050706
  Receipt Date: 20050629
  Transmission Date: 20060218
  Serious: Yes (Other)
  Sender: FDA-Public Use
  Company Number: US-JNJFOC-20050700069

PATIENT
  Sex: Female
  Weight: 76.66 kg

DRUGS (2)
  1. ULTRACET [Suspect]
     Indication: PAIN
     Dosage: 2 TABLETS, 4-5 TIMES PER DAY
     Route: 049
     Dates: start: 20030101, end: 20050501
  2. BLACK COHOSH [Concomitant]
     Indication: MENOPAUSAL SYMPTOMS

REACTIONS (3)
  - COUGH [None]
  - FATIGUE [None]
  - PULMONARY FIBROSIS [None]
